FAERS Safety Report 6945325-0 (Version None)
Quarter: 2010Q3

REPORT INFORMATION
  Report Type: 
  Country: None (occurrence: None)
  Receive Date: 20100827
  Receipt Date: 20100727
  Transmission Date: 20110219
  Serious: No
  Sender: FDA-Public Use
  Company Number: US-BAYER-201018960BCC

PATIENT
  Sex: Female
  Weight: 100 kg

DRUGS (3)
  1. ALEVE (CAPLET) [Suspect]
     Indication: ARTHRALGIA
     Dosage: TOTAL DAILY DOSE: 220 MG  UNIT DOSE: 220 MG
     Route: 048
     Dates: start: 20100726
  2. LIDODERM [Concomitant]
     Route: 065
  3. FLECTOR PATCHES [Concomitant]
     Route: 065

REACTIONS (1)
  - ARTHRALGIA [None]
